FAERS Safety Report 20511811 (Version 3)
Quarter: 2022Q2

REPORT INFORMATION
  Report Type: Report from Study
  Country: US (occurrence: US)
  Receive Date: 20220224
  Receipt Date: 20220428
  Transmission Date: 20220721
  Serious: Yes (Other)
  Sender: FDA-Public Use
  Company Number: US-BIOGEN-2022BI01098807

PATIENT
  Sex: Female

DRUGS (3)
  1. PLEGRIDY [Suspect]
     Active Substance: PEGINTERFERON BETA-1A
     Indication: Multiple sclerosis
     Route: 065
     Dates: start: 20150601
  2. PLEGRIDY [Suspect]
     Active Substance: PEGINTERFERON BETA-1A
     Route: 065
     Dates: start: 2012, end: 2022
  3. COPAXONE [Concomitant]
     Active Substance: GLATIRAMER ACETATE
     Indication: Product used for unknown indication
     Route: 065

REACTIONS (1)
  - Blindness unilateral [Unknown]

NARRATIVE: CASE EVENT DATE: 20160101
